FAERS Safety Report 18365624 (Version 2)
Quarter: 2022Q2

REPORT INFORMATION
  Report Type: Spontaneous
  Country: US (occurrence: US)
  Receive Date: 20201009
  Receipt Date: 20220613
  Transmission Date: 20220720
  Serious: Yes (Other)
  Sender: FDA-Public Use
  Company Number: US-SAARTEMIS-SAC202010050671

PATIENT
  Age: 33 Year
  Sex: Female

DRUGS (1)
  1. ZANTAC [Suspect]
     Active Substance: RANITIDINE HYDROCHLORIDE
     Indication: Dyspepsia
     Dosage: 150 MG, QD
     Dates: start: 200801, end: 201801

REACTIONS (2)
  - Breast cancer stage IV [Unknown]
  - Colorectal cancer stage IV [Unknown]

NARRATIVE: CASE EVENT DATE: 20130101
